FAERS Safety Report 9924011 (Version 1)
Quarter: 2014Q1

REPORT INFORMATION
  Report Type: Spontaneous
  Country: GB (occurrence: GB)
  Receive Date: 20140225
  Receipt Date: 20140225
  Transmission Date: 20141002
  Serious: Yes (Life-Threatening, Hospitalization, Other)
  Sender: FDA-Public Use
  Company Number: GB-009507513-1402GBR008783

PATIENT
  Age: 75 Year
  Sex: Male

DRUGS (8)
  1. LOSARTAN POTASSIUM [Suspect]
     Indication: HYPERTENSION
     Dosage: 50 MG, 1/1 DAYS
     Route: 048
     Dates: end: 20140131
  2. AMLODIPINE [Concomitant]
  3. ANUSOL (BISMUTH OXIDE (+) BISMUTH SUBGALLATE (+) PERUVIAN BALSAM (+) Z [Concomitant]
  4. CITALOPRAM [Concomitant]
  5. LANSOPRAZOLE [Concomitant]
  6. ALBUTEROL SULFATE [Concomitant]
  7. SERETIDE [Concomitant]
  8. ZOPICLONE [Concomitant]

REACTIONS (2)
  - Loss of consciousness [Unknown]
  - Hyperkalaemia [Recovered/Resolved]
